FAERS Safety Report 25473676 (Version 1)
Quarter: 2025Q2

REPORT INFORMATION
  Report Type: Spontaneous
  Country: CN (occurrence: CN)
  Receive Date: 20250624
  Receipt Date: 20250624
  Transmission Date: 20250717
  Serious: Yes (Life-Threatening, Other)
  Sender: BAYER HEALTHCARE PHARMACEUTICALS INC.
  Company Number: CN-BAYER-2025A083715

PATIENT
  Age: 89 Year
  Sex: Female
  Weight: 30 kg

DRUGS (1)
  1. AVELOX [Suspect]
     Active Substance: MOXIFLOXACIN HYDROCHLORIDE
     Indication: Pneumonia
     Dosage: 0.4 G, QD
     Route: 041
     Dates: start: 20250414, end: 20250415

REACTIONS (4)
  - Epilepsy [Recovering/Resolving]
  - Convulsions local [None]
  - Anal incontinence [None]
  - Incoherent [None]

NARRATIVE: CASE EVENT DATE: 20250415
